FAERS Safety Report 5655517-9 (Version None)
Quarter: 2008Q1

REPORT INFORMATION
  Report Type: 
  Country: None (occurrence: None)
  Receive Date: 20080307
  Receipt Date: 20080224
  Transmission Date: 20080703
  Serious: Yes (Other)
  Sender: FDA-Public Use
  Company Number: AU-SANOFI-SYNTHELABO-A01200802138

PATIENT
  Age: 35 Year
  Sex: Female

DRUGS (1)
  1. STILNOX [Suspect]
     Indication: INSOMNIA
     Route: 048
     Dates: start: 20071126, end: 20071126

REACTIONS (2)
  - AMNESIA [None]
  - SHOPLIFTING [None]
